FAERS Safety Report 4330459-X (Version None)
Quarter: 2004Q1

REPORT INFORMATION
  Report Type: 
  Country: None (occurrence: None)
  Receive Date: 20040330
  Receipt Date: 20040316
  Transmission Date: 20041129
  Serious: Yes (Hospitalization)
  Sender: FDA-Public Use
  Company Number: GB-JNJFOC-20040300235

PATIENT
  Age: 18 Year
  Sex: Male

DRUGS (5)
  1. REMICADE [Suspect]
     Indication: JUVENILE ARTHRITIS
     Dosage: 200 MG, INTRAVENOUS
     Route: 042
     Dates: start: 20030626, end: 20031127
  2. PREDNISOLONE [Concomitant]
  3. METHOTREXATE [Concomitant]
  4. FOLIC ACID [Concomitant]
  5. CO-CODAMOL (PANADEINE CO) [Concomitant]

REACTIONS (17)
  - ALANINE AMINOTRANSFERASE INCREASED [None]
  - ASPIRATION [None]
  - CEREBRAL HAEMORRHAGE [None]
  - COAGULOPATHY [None]
  - CSF PROTEIN INCREASED [None]
  - DEPRESSED LEVEL OF CONSCIOUSNESS [None]
  - DIALYSIS [None]
  - DISSEMINATED INTRAVASCULAR COAGULATION [None]
  - DRUG TOXICITY [None]
  - GRAND MAL CONVULSION [None]
  - HAEMARTHROSIS [None]
  - HEMIPARESIS [None]
  - HISTIOCYTOSIS HAEMATOPHAGIC [None]
  - LIVER FUNCTION TEST ABNORMAL [None]
  - PANCYTOPENIA [None]
  - RASH [None]
  - SEPTIC SHOCK [None]
